FAERS Safety Report 9875776 (Version 3)
Quarter: 2014Q2

REPORT INFORMATION
  Report Type: Spontaneous
  Country: CH (occurrence: None)
  Receive Date: 20140204
  Receipt Date: 20140408
  Transmission Date: 20141212
  Serious: Yes (Other)
  Sender: FDA-Public Use
  Company Number: 20140029

PATIENT
  Age: 22 Year
  Sex: Female
  Weight: 49 kg

DRUGS (1)
  1. FERINJECT [Suspect]
     Indication: IRON DEFICIENCY
     Dosage: UNKNOWN INTRAVENOUS
     Route: 042
     Dates: start: 201109, end: 201112

REACTIONS (4)
  - Cystic fibrosis [None]
  - Condition aggravated [None]
  - White blood cell count decreased [None]
  - Lung disorder [None]
